FAERS Safety Report 7757697-8 (Version None)
Quarter: 2011Q3

REPORT INFORMATION
  Report Type: 
  Country: None (occurrence: None)
  Receive Date: 20110916
  Receipt Date: 20110912
  Transmission Date: 20111222
  Serious: Yes (Other)
  Sender: FDA-Public Use
  Company Number: JP-MERCK-1109USA01196

PATIENT
  Sex: Female

DRUGS (2)
  1. COZAAR [Suspect]
     Route: 048
     Dates: start: 20040721, end: 20110908
  2. PROTECADIN [Concomitant]
     Dosage: DAILY DOSAGE UNKNOWN
     Route: 048

REACTIONS (1)
  - APLASIA PURE RED CELL [None]
